FAERS Safety Report 15807159 (Version 1)
Quarter: 2019Q1

REPORT INFORMATION
  Report Type: Spontaneous
  Country: GB (occurrence: GB)
  Receive Date: 20190110
  Receipt Date: 20190110
  Transmission Date: 20190417
  Serious: Yes (Life-Threatening)
  Sender: FDA-Public Use
  Company Number: GB-SA-2019SA005286

PATIENT
  Age: 64 Year
  Sex: Male
  Weight: 85 kg

DRUGS (19)
  1. CODEINE PHOSPHATE [Concomitant]
     Active Substance: CODEINE PHOSPHATE
     Dosage: TAKE ONE UP TO FOUR TIMES A DAY
     Route: 065
     Dates: start: 20180606, end: 20181217
  2. LAXIDO [Concomitant]
     Active Substance: POLYETHYLENE GLYCOL 3350\POTASSIUM CHLORIDE\SODIUM BICARBONATE\SODIUM CHLORIDE
     Dosage: UP TO THREE TIMES DAILY AS NEEDED TO KEEP STOOL
     Route: 065
     Dates: start: 20180606
  3. AMITRIPTYLINE HYDROCHLORIDE. [Concomitant]
     Active Substance: AMITRIPTYLINE HYDROCHLORIDE
     Dosage: 1 DF, HS
     Route: 065
     Dates: start: 20180606
  4. HUMULIN L [Concomitant]
     Active Substance: INSULIN HUMAN
     Dosage: EACH EVENING
     Route: 065
     Dates: start: 20180606
  5. PERINDOPRIL TERT-BUTYLAMINE [Concomitant]
     Active Substance: PERINDOPRIL ERBUMINE
     Dosage: 1 DF, QD
     Dates: start: 20180606
  6. GLICLAZIDE [Concomitant]
     Active Substance: GLICLAZIDE
     Dosage: 4 DF, QD
     Route: 065
     Dates: start: 20180606
  7. ATORVASTATIN [Concomitant]
     Active Substance: ATORVASTATIN
     Dosage: 1 DF, QD
     Route: 065
     Dates: start: 20180606, end: 20181213
  8. SUKKARTO [Concomitant]
     Active Substance: METFORMIN HYDROCHLORIDE
     Dosage: 2 DF, QD
     Route: 065
     Dates: start: 20180606
  9. MEBEVERINE HYDROCHLORIDE [Concomitant]
     Active Substance: MEBEVERINE HYDROCHLORIDE
     Dosage: 3 DF, QD
     Route: 065
     Dates: start: 20181106, end: 20181204
  10. GLYCERYL TRINITRATE [Concomitant]
     Active Substance: NITROGLYCERIN
     Dosage: SPRAY 1-2 DOSES UNDER TONGUE AND THEN CLOSE
     Dates: start: 20180606
  11. PARACETAMOL [Concomitant]
     Active Substance: ACETAMINOPHEN
     Dosage: FOUR TIMES DAILY
     Route: 065
     Dates: start: 20180606
  12. HYOSCINE BUTYLBROMIDE [Concomitant]
     Active Substance: BUTYLSCOPOLAMINE
     Dosage: 3 DF, QD
     Route: 065
     Dates: start: 20181011, end: 20181108
  13. MORPHINE SULFATE. [Concomitant]
     Active Substance: MORPHINE SULFATE
     Dosage: EVERY FOUR HOURS
     Route: 065
     Dates: start: 20181213
  14. ACETYLSALICYLIC ACID [Concomitant]
     Active Substance: ASPIRIN
     Dosage: 1 DF, QD
     Route: 065
     Dates: start: 20180606
  15. BISOPROLOL [Concomitant]
     Active Substance: BISOPROLOL
     Dosage: 1 DF, QD
     Route: 065
     Dates: start: 20180606
  16. LIXISENATIDE [Suspect]
     Active Substance: LIXISENATIDE
     Dosage: 20MICROGRAMS/0.2ML
     Route: 058
     Dates: start: 20180806
  17. LANSOPRAZOLE. [Concomitant]
     Active Substance: LANSOPRAZOLE
     Dosage: 1 DF, QD
     Dates: start: 20180806, end: 20180927
  18. NICORANDIL [Concomitant]
     Active Substance: NICORANDIL
     Dosage: TAKE HALF TO ONE TWICE DAILY
     Route: 065
     Dates: start: 20180606
  19. PANTOPRAZOLE [Concomitant]
     Active Substance: PANTOPRAZOLE
     Dosage: 1 DF, QD
     Route: 065
     Dates: start: 20180927

REACTIONS (2)
  - Pancreatic carcinoma [Not Recovered/Not Resolved]
  - Abdominal pain [Unknown]

NARRATIVE: CASE EVENT DATE: 20181217
